FAERS Safety Report 14186651 (Version 1)
Quarter: 2017Q4

REPORT INFORMATION
  Report Type: Spontaneous
  Country: GB (occurrence: GB)
  Receive Date: 20171114
  Receipt Date: 20171114
  Transmission Date: 20180321
  Serious: Yes (Disabling, Other)
  Sender: FDA-Public Use
  Company Number: GB-MYLANLABS-2017M1070207

PATIENT
  Age: 70 Year
  Sex: Female
  Weight: 54.88 kg

DRUGS (8)
  1. ALENDRONATE [Suspect]
     Active Substance: ALENDRONATE SODIUM
     Indication: OSTEOPOROSIS
     Dosage: IN THE MORNING
     Route: 048
     Dates: start: 20160828, end: 20161029
  2. ACETAZOLAMID [Concomitant]
     Active Substance: ACETAZOLAMIDE
  3. TEGRETOL XR [Concomitant]
     Active Substance: CARBAMAZEPINE
  4. KEPPRA [Concomitant]
     Active Substance: LEVETIRACETAM
  5. EPILIM [Concomitant]
     Active Substance: VALPROATE SODIUM
  6. NITRAZEPAM [Concomitant]
     Active Substance: NITRAZEPAM
  7. COLECALCIFEROL [Concomitant]
     Active Substance: CHOLECALCIFEROL
  8. PARACETAMOL [Concomitant]
     Active Substance: ACETAMINOPHEN

REACTIONS (4)
  - Muscle tightness [Recovering/Resolving]
  - Epilepsy [Not Recovered/Not Resolved]
  - Ligament pain [Not Recovered/Not Resolved]
  - Myalgia [Not Recovered/Not Resolved]
